FAERS Safety Report 18116155 (Version 2)
Quarter: 2021Q1

REPORT INFORMATION
  Report Type: Spontaneous
  Country: US (occurrence: US)
  Receive Date: 20200805
  Receipt Date: 20210219
  Transmission Date: 20210419
  Serious: Yes (Other)
  Sender: FDA-Public Use
  Company Number: US-TEVA-2020-US-1809642

PATIENT
  Age: 75 Year
  Sex: Female

DRUGS (17)
  1. CRESTOR 5MILLIGRAM [Concomitant]
     Indication: BLOOD CHOLESTEROL INCREASED
     Dosage: EVERY OTHER DAY
     Route: 048
  2. PREDNISOLONE 1 MG [Concomitant]
  3. FOLIC ACID. [Concomitant]
     Active Substance: FOLIC ACID
  4. PLAQUENIL 200MG [Concomitant]
     Dosage: 200 MILLIGRAM DAILY; 200MG, DAILY
     Route: 048
     Dates: start: 2016
  5. HYDROCHLOROTHIAZIDE 12.5MG [Concomitant]
     Active Substance: HYDROCHLOROTHIAZIDE
     Indication: FLUID RETENTION
  6. TRIAMCINOLONE [Concomitant]
     Active Substance: TRIAMCINOLONE
  7. VALSARTAN ACTAVIS [Suspect]
     Active Substance: VALSARTAN
     Indication: HYPERTENSION
     Dosage: DOSAGE: 160MG;
     Route: 048
     Dates: start: 20150415, end: 20180625
  8. TORAL [Concomitant]
     Indication: PROPHYLAXIS
     Dosage: 25 MILLIGRAM, DAILY
  9. PREDNISONE. [Concomitant]
     Active Substance: PREDNISONE
     Indication: SLE ARTHRITIS
     Dosage: DOSAGE: 5MG
     Dates: start: 20140508, end: 20160504
  10. ELIDEL [Concomitant]
     Active Substance: PIMECROLIMUS
  11. VALSARTAN CAMBER [Suspect]
     Active Substance: VALSARTAN
     Indication: HYPERTENSION
     Dosage: DOSAGE: 160MG
     Route: 048
     Dates: start: 20160414, end: 20180625
  12. VALSARTAN OHM [Suspect]
     Active Substance: VALSARTAN
     Indication: HYPERTENSION
     Dosage: DOSAGE: 160MG
     Route: 048
     Dates: start: 20150813, end: 20151112
  13. DIOVAN [Suspect]
     Active Substance: VALSARTAN
     Indication: HYPERTENSION
     Dosage: 160MG. DAILY
     Route: 048
  14. TOPROL?XL 50MG [Concomitant]
     Indication: HYPERTENSION
     Route: 048
     Dates: start: 20140506
  15. AVAPRO [Concomitant]
     Active Substance: IRBESARTAN
     Dosage: 75 MILLIGRAM DAILY; DOSAGE: 75MG
     Route: 048
  16. HYDROCHLOROTHIAZIDE 12.5MG [Concomitant]
     Active Substance: HYDROCHLOROTHIAZIDE
     Indication: HYPERTENSION
     Dates: start: 20140115, end: 20160729
  17. HYDRALAZINE [Concomitant]
     Active Substance: HYDRALAZINE HYDROCHLORIDE

REACTIONS (1)
  - Colon cancer [Unknown]
